FAERS Safety Report 6170964-7 (Version None)
Quarter: 2009Q2

REPORT INFORMATION
  Report Type: 
  Country: None (occurrence: None)
  Receive Date: 20090427
  Receipt Date: 20090427
  Transmission Date: 20091009
  Serious: Yes (Life-Threatening)
  Sender: FDA-Public Use
  Company Number: None

PATIENT
  Age: 77 Year
  Sex: Male
  Weight: 127 kg

DRUGS (9)
  1. ENOXAPARIN SODIUM [Suspect]
     Indication: DEEP VEIN THROMBOSIS
     Dosage: 120 MG SQ Q12
     Dates: start: 20081130, end: 20081208
  2. CEFEPIME [Concomitant]
  3. KEPPRA [Concomitant]
  4. COREG [Concomitant]
  5. RIFAXAMIN [Concomitant]
  6. RANITIDINE [Concomitant]
  7. INSULIN [Concomitant]
  8. NYSTATIN [Concomitant]
  9. LACTULOSE [Concomitant]

REACTIONS (2)
  - GASTROINTESTINAL HAEMORRHAGE [None]
  - HAEMOGLOBIN DECREASED [None]
